FAERS Safety Report 15312868 (Version 2)
Quarter: 2018Q4

REPORT INFORMATION
  Report Type: Report from Study
  Country: None (occurrence: US)
  Receive Date: 20180823
  Receipt Date: 20181026
  Transmission Date: 20190204
  Serious: Yes (Other)
  Sender: FDA-Public Use
  Company Number: US-ABBVIE-18P-163-2355063-00

PATIENT
  Sex: Male

DRUGS (8)
  1. VENETOCLAX. [Suspect]
     Active Substance: VENETOCLAX
     Dosage: WEEK 3
     Route: 048
  2. DOXORUBICIN [Concomitant]
     Active Substance: DOXORUBICIN
     Indication: PRODUCT USED FOR UNKNOWN INDICATION
  3. VENETOCLAX. [Suspect]
     Active Substance: VENETOCLAX
     Dosage: WEEK 1
     Route: 048
  4. VENETOCLAX. [Suspect]
     Active Substance: VENETOCLAX
     Dosage: WEEK 4
     Route: 048
  5. RITUXAN [Suspect]
     Active Substance: RITUXIMAB
     Indication: B-CELL LYMPHOMA
     Route: 065
     Dates: start: 2003
  6. VENETOCLAX. [Suspect]
     Active Substance: VENETOCLAX
     Dosage: WEEK 2
     Route: 048
  7. PREDNISOLONE. [Concomitant]
     Active Substance: PREDNISOLONE
     Indication: PRODUCT USED FOR UNKNOWN INDICATION
  8. VENETOCLAX. [Suspect]
     Active Substance: VENETOCLAX
     Indication: B-CELL LYMPHOMA
     Route: 048
     Dates: start: 20180508

REACTIONS (3)
  - Intentional product use issue [Unknown]
  - Pneumonia [Unknown]
  - Respiratory failure [Unknown]
